FAERS Safety Report 8255649-5 (Version None)
Quarter: 2012Q2

REPORT INFORMATION
  Report Type: 
  Country: None (occurrence: None)
  Receive Date: 20120403
  Receipt Date: 20120327
  Transmission Date: 20120825
  Serious: Yes (Other)
  Sender: FDA-Public Use
  Company Number: PHHY2012BR005591

PATIENT
  Sex: Female

DRUGS (4)
  1. CARVEDILOL [Concomitant]
     Indication: HYPERTENSION
     Dosage: 1 DF, QD
  2. AMLODIPINE BESYLATE [Concomitant]
     Indication: HYPERTENSION
     Dosage: 2 DF, QD
  3. BENICAR [Concomitant]
     Indication: HYPERTENSION
     Dosage: 2 DF, QD
  4. EXELON [Suspect]
     Indication: DEMENTIA ALZHEIMER'S TYPE
     Dosage: 18MG/10CM2, ONE PATCH DAILY
     Route: 062

REACTIONS (4)
  - APPLICATION SITE PRURITUS [None]
  - SKIN INJURY [None]
  - APPLICATION SITE EXFOLIATION [None]
  - APPLICATION SITE ERYTHEMA [None]
